FAERS Safety Report 20008000 (Version 1)
Quarter: 2021Q4

REPORT INFORMATION
  Report Type: Report from Study
  Country: US (occurrence: US)
  Receive Date: 20211028
  Receipt Date: 20211028
  Transmission Date: 20220303
  Serious: Yes (Other)
  Sender: FDA-Public Use
  Company Number: US-TAKEDA-2021TUS064937

PATIENT
  Sex: Female

DRUGS (3)
  1. BRIGATINIB [Suspect]
     Active Substance: BRIGATINIB
     Indication: Malignant connective tissue neoplasm
     Dosage: 180 MILLIGRAM, QD
     Route: 048
     Dates: start: 20211021
  2. BRIGATINIB [Suspect]
     Active Substance: BRIGATINIB
     Indication: Neoplasm malignant
  3. LOSARTAN [Suspect]
     Active Substance: LOSARTAN
     Indication: Product used for unknown indication
     Dosage: UNK
     Route: 065

REACTIONS (6)
  - Soft tissue sarcoma [Unknown]
  - Malignant connective tissue neoplasm [Unknown]
  - Blood pressure inadequately controlled [Unknown]
  - Anaplastic lymphoma kinase gene mutation [Unknown]
  - Drug interaction [Unknown]
  - Off label use [Unknown]
